FAERS Safety Report 14979371 (Version 4)
Quarter: 2019Q4

REPORT INFORMATION
  Report Type: Spontaneous
  Country: AT (occurrence: AT)
  Receive Date: 20180606
  Receipt Date: 20191126
  Transmission Date: 20200122
  Serious: Yes (Death, Other)
  Sender: FDA-Public Use
  Company Number: AT-INCYTE CORPORATION-2018IN005287

PATIENT

DRUGS (6)
  1. JAKAVI [Suspect]
     Active Substance: RUXOLITINIB
     Dosage: 5 MG, QD
     Route: 048
     Dates: start: 20161219, end: 20170213
  2. JAKAVI [Suspect]
     Active Substance: RUXOLITINIB
     Dosage: 5 MG, Q3W
     Route: 048
     Dates: start: 20170428, end: 20171017
  3. JAKAVI [Suspect]
     Active Substance: RUXOLITINIB
     Dosage: 5 MG, Q2W
     Route: 048
     Dates: start: 20171018, end: 20180411
  4. NPLATE [Concomitant]
     Active Substance: ROMIPLOSTIM
     Indication: PRODUCT USED FOR UNKNOWN INDICATION
     Dosage: UNK
     Route: 065
  5. JAKAVI [Suspect]
     Active Substance: RUXOLITINIB
     Indication: MYELOFIBROSIS
     Dosage: 5 MG, BID
     Route: 048
     Dates: start: 20161122, end: 20161218
  6. JAKAVI [Suspect]
     Active Substance: RUXOLITINIB
     Dosage: 5 MG, Q4W
     Route: 048
     Dates: start: 20170214, end: 20170427

REACTIONS (12)
  - Haemorrhage [Unknown]
  - Haematoma [Unknown]
  - Carotid artery stenosis [Unknown]
  - Haemorrhagic diathesis [Unknown]
  - Squamous cell carcinoma [Recovered/Resolved]
  - Arteriosclerosis [Fatal]
  - Recurrent cancer [Fatal]
  - Squamous cell carcinoma [Recovered/Resolved]
  - Aortic valve stenosis [Unknown]
  - Pruritus [Unknown]
  - Post procedural haemorrhage [Unknown]
  - Therapy non-responder [Unknown]

NARRATIVE: CASE EVENT DATE: 201702
